FAERS Safety Report 23617436 (Version 1)
Quarter: 2024Q1

REPORT INFORMATION
  Report Type: Spontaneous
  Country: AT (occurrence: AT)
  Receive Date: 20240311
  Receipt Date: 20240311
  Transmission Date: 20240410
  Serious: Yes (Hospitalization)
  Sender: FDA-Public Use
  Company Number: AT-AMICUS THERAPEUTICS, INC.-AMI_2974

PATIENT

DRUGS (2)
  1. POMBILITI [Suspect]
     Active Substance: CIPAGLUCOSIDASE ALFA-ATGA
     Indication: Product used for unknown indication
     Dosage: 1050 MILLIGRAM, UNK
     Route: 042
  2. OPFOLDA [Suspect]
     Active Substance: MIGLUSTAT
     Indication: Product used for unknown indication
     Dosage: 260 MILLIGRAM
     Route: 048

REACTIONS (1)
  - Sputum increased [Recovered/Resolved]

NARRATIVE: CASE EVENT DATE: 20240201
